FAERS Safety Report 6404233-4 (Version None)
Quarter: 2009Q4

REPORT INFORMATION
  Report Type: 
  Country: None (occurrence: None)
  Receive Date: 20091016
  Receipt Date: 20091005
  Transmission Date: 20100525
  Serious: Yes (Hospitalization)
  Sender: FDA-Public Use
  Company Number: FR-PFIZER INC-2009277963

PATIENT
  Age: 71 Year

DRUGS (17)
  1. SOLU-MEDROL [Suspect]
     Indication: PREMEDICATION
     Dosage: UNK
     Dates: start: 20090821, end: 20090821
  2. AMLODIPINE [Suspect]
     Dosage: 10 MG, 1X/DAY
     Route: 048
     Dates: start: 20090822
  3. METFORMIN HCL [Suspect]
     Indication: TYPE 2 DIABETES MELLITUS
     Dosage: 500 MG, 3X/DAY
     Route: 048
     Dates: start: 20090822, end: 20090828
  4. BETADINE [Suspect]
     Indication: INFECTION PROPHYLAXIS
     Dosage: UNK
     Route: 061
     Dates: start: 20090821, end: 20090821
  5. ISOPTIN [Suspect]
     Indication: PREMEDICATION
     Dosage: UNK
     Dates: start: 20090821, end: 20090821
  6. LOVENOX [Suspect]
     Indication: PREMEDICATION
     Dosage: UNK
     Route: 058
     Dates: start: 20090821, end: 20090821
  7. RISORDAN [Suspect]
     Indication: PREMEDICATION
     Dosage: UNK
     Dates: start: 20090821, end: 20090821
  8. NOVONORM [Suspect]
     Dosage: 1.5 MG, 1X/DAY
     Route: 048
     Dates: start: 20090822, end: 20090828
  9. KARDEGIC [Suspect]
     Dosage: 160 MG, 1X/DAY
     Route: 048
     Dates: start: 20090822
  10. PLAVIX [Suspect]
     Dosage: 75 MG, 1X/DAY
     Dates: start: 20090822
  11. VISIPAQUE [Suspect]
     Dosage: UNK
     Route: 042
     Dates: start: 20090821, end: 20090821
  12. JANUVIA [Concomitant]
     Indication: TYPE 2 DIABETES MELLITUS
     Dosage: UNK
     Dates: start: 20090101
  13. AERIUS [Concomitant]
  14. HAVLANE [Concomitant]
  15. DAFLON [Concomitant]
  16. FORLAX [Concomitant]
  17. NORDAZ [Concomitant]

REACTIONS (3)
  - PRURITUS [None]
  - RASH ERYTHEMATOUS [None]
  - RASH MACULO-PAPULAR [None]
